FAERS Safety Report 7618014-7 (Version None)
Quarter: 2011Q3

REPORT INFORMATION
  Report Type: 
  Country: None (occurrence: None)
  Receive Date: 20110718
  Receipt Date: 20110712
  Transmission Date: 20111222
  Serious: Yes (Death, Life-Threatening, Hospitalization, Other)
  Sender: FDA-Public Use
  Company Number: PHHY2010JP79093

PATIENT
  Age: 59 Year
  Sex: Male
  Weight: 60 kg

DRUGS (14)
  1. LOXOPROFEN [Suspect]
     Dosage: 180 MG, UNK
     Route: 048
     Dates: start: 20100805, end: 20100901
  2. SUNITINIB MALATE [Concomitant]
     Indication: METASTATIC RENAL CELL CARCINOMA
     Dosage: 50 MG, QD
     Route: 048
     Dates: start: 20100218, end: 20100430
  3. MUCOSTA [Concomitant]
     Dosage: 300 MEQ/KG, UNK
     Route: 048
  4. NAPROXEN [Concomitant]
     Dosage: 300 MG, UNK
     Route: 048
     Dates: start: 20100805
  5. INTERFERON ALFA [Concomitant]
     Indication: METASTATIC RENAL CELL CARCINOMA
     Dosage: 3000000 IU, UNK
     Dates: start: 20090423, end: 20090617
  6. LEVOFLOXACIN [Concomitant]
     Dosage: 500 MG, UNK
     Route: 048
     Dates: start: 20101014, end: 20101021
  7. POLARAMINE [Concomitant]
     Dosage: 2 MG, UNK
     Route: 048
     Dates: start: 20100915
  8. RESTAMIN CORTIZON [Concomitant]
     Dates: start: 20100915
  9. AFINITOR [Suspect]
     Dosage: 10 MG QD
     Route: 048
     Dates: start: 20101102, end: 20101109
  10. VOLTAREN [Concomitant]
     Dosage: 150 MG, UNK
     Dates: start: 20101014, end: 20101021
  11. LANSOPRAZOLE [Concomitant]
     Dosage: 30 MG, UNK
     Route: 048
     Dates: start: 20101014
  12. SORAFENIB TOSILATE [Concomitant]
     Indication: METASTATIC RENAL CELL CARCINOMA
     Dosage: 800 MG, QD
     Route: 048
     Dates: start: 20090618, end: 20100217
  13. AFINITOR [Suspect]
     Indication: METASTATIC RENAL CELL CARCINOMA
     Dosage: 10 MG, QD
     Route: 048
     Dates: start: 20100514, end: 20101014
  14. FERROUS CITRATE [Concomitant]
     Dosage: 100 MG, UNK
     Route: 048
     Dates: start: 20100930, end: 20101013

REACTIONS (21)
  - HEPATIC ATROPHY [None]
  - ASCITES [None]
  - DELIRIUM [None]
  - PNEUMONIA [None]
  - GENERALISED OEDEMA [None]
  - METASTASES TO ADRENALS [None]
  - RENAL CYST [None]
  - METASTASES TO LYMPH NODES [None]
  - FAECES DISCOLOURED [None]
  - HEPATITIS B [None]
  - PERICARDIAL EFFUSION [None]
  - LUNG ABSCESS [None]
  - PLEURAL EFFUSION [None]
  - MALAISE [None]
  - DISSEMINATED INTRAVASCULAR COAGULATION [None]
  - METASTASES TO LUNG [None]
  - HEPATORENAL SYNDROME [None]
  - HEPATIC FAILURE [None]
  - HYPOTENSION [None]
  - PNEUMONIA FUNGAL [None]
  - AGITATION [None]
